FAERS Safety Report 6283456-1 (Version None)
Quarter: 2009Q3

REPORT INFORMATION
  Report Type: 
  Country: None (occurrence: None)
  Receive Date: 20090721
  Receipt Date: 20090721
  Transmission Date: 20100115
  Serious: Yes (Other)
  Sender: FDA-Public Use
  Company Number: None

PATIENT
  Age: 47 Year
  Sex: Female
  Weight: 65.7716 kg

DRUGS (1)
  1. SINGULAIR [Suspect]
     Indication: ASTHMA EXERCISE INDUCED
     Dosage: 1 10 MG TABLET DAILY PO
     Route: 048
     Dates: start: 20060801, end: 20090707

REACTIONS (6)
  - ANXIETY [None]
  - DEPRESSION [None]
  - ECONOMIC PROBLEM [None]
  - FATIGUE [None]
  - HEADACHE [None]
  - MIGRAINE [None]
